FAERS Safety Report 14304869 (Version 1)
Quarter: 2017Q4

REPORT INFORMATION
  Report Type: Spontaneous
  Country: JP (occurrence: JP)
  Receive Date: 20171219
  Receipt Date: 20171219
  Transmission Date: 20180321
  Serious: Yes (Other)
  Sender: FDA-Public Use
  Company Number: JP-OTSUKA-03100-JPN-07-0305

PATIENT
  Age: 34 Year
  Sex: Female
  Weight: 43 kg

DRUGS (19)
  1. ABILIFY [Suspect]
     Active Substance: ARIPIPRAZOLE
     Route: 048
     Dates: start: 20070531, end: 20070703
  2. RISPERDAL [Concomitant]
     Active Substance: RISPERIDONE
     Dosage: 6 MG, BID
     Route: 048
     Dates: start: 20070501, end: 20070511
  3. WYPAX [Concomitant]
     Active Substance: LORAZEPAM
     Dosage: 1 MG, BID
     Route: 048
     Dates: start: 20070517, end: 20070528
  4. TASMOLIN [Concomitant]
     Active Substance: BIPERIDEN
     Dosage: 4 MG, BID
     Route: 048
     Dates: start: 20070523
  5. EURODIN [Concomitant]
     Dosage: 1 MG, QD
     Route: 048
     Dates: start: 20070629
  6. RISPERIDONE. [Concomitant]
     Active Substance: RISPERIDONE
     Indication: SCHIZOPHRENIA
     Dosage: DOSE REDUCED TO 2MG FROM 12/MAY/2007.
     Route: 048
     Dates: start: 20070501, end: 20070516
  7. CHLORPROMAZINE HCL [Concomitant]
     Active Substance: CHLORPROMAZINE HYDROCHLORIDE
     Indication: SCHIZOPHRENIA
     Dosage: 25 MG, TOTAL
     Route: 048
     Dates: start: 20070628, end: 20070628
  8. RISPERDAL [Concomitant]
     Active Substance: RISPERIDONE
     Dosage: 2 MG, QD
     Route: 048
     Dates: start: 20070512, end: 20070516
  9. BIPERIDEN HCL [Concomitant]
     Active Substance: BIPERIDEN HYDROCHLORIDE
     Indication: PARKINSONISM
     Dosage: DOSE INCREASED TO 8MG FROM 23/MAY/2007.
     Route: 048
     Dates: start: 20070517
  10. RILMAZAFONE HCL [Concomitant]
     Indication: INSOMNIA
     Dosage: 2 MG, UNK
     Route: 048
     Dates: start: 20070622
  11. ABILIFY [Suspect]
     Active Substance: ARIPIPRAZOLE
     Dosage: 6 MG, BID
     Route: 048
     Dates: start: 20070501, end: 20070522
  12. ABILIFY [Suspect]
     Active Substance: ARIPIPRAZOLE
     Dosage: 9 MG, BID
     Route: 048
     Dates: start: 20070523, end: 20070530
  13. WYPAX [Concomitant]
     Active Substance: LORAZEPAM
     Dosage: 1.5 MG, TID
     Route: 048
     Dates: start: 20070529
  14. ABILIFY [Suspect]
     Active Substance: ARIPIPRAZOLE
     Dosage: 6 MG, BID
     Route: 048
     Dates: start: 20070704, end: 20070716
  15. ABILIFY [Suspect]
     Active Substance: ARIPIPRAZOLE
     Route: 048
     Dates: start: 20070717, end: 20070720
  16. TASMOLIN [Concomitant]
     Active Substance: BIPERIDEN
     Dosage: 2 MG, BID
     Route: 048
     Dates: start: 20070517, end: 20070522
  17. CONTOMIN [Concomitant]
     Active Substance: CHLORPROMAZINE
     Dosage: 25 MG, QD
     Route: 048
     Dates: start: 20070628, end: 20070628
  18. LORAZEPAM. [Concomitant]
     Active Substance: LORAZEPAM
     Indication: ANXIETY DISORDER
     Dosage: DOSE INCREASED TO 4.5MG FROM 29/MAY/2007.
     Route: 048
     Dates: start: 20070517
  19. RHYTHMY [Concomitant]
     Active Substance: RILMAZAFONE HYDROCHLORIDE
     Dosage: 2 MG, QD
     Route: 048
     Dates: start: 20070622

REACTIONS (1)
  - Pancytopenia [Recovered/Resolved]

NARRATIVE: CASE EVENT DATE: 20070703
